FAERS Safety Report 5333171-3 (Version None)
Quarter: 2007Q2

REPORT INFORMATION
  Report Type: 
  Country: None (occurrence: None)
  Receive Date: 20070521
  Receipt Date: 20070521
  Transmission Date: 20071010
  Serious: Yes (Other)
  Sender: FDA-Public Use
  Company Number: None

PATIENT
  Age: 32 Year
  Sex: Female
  Weight: 54.4316 kg

DRUGS (1)
  1. MINOCYCLINE 50MG TEVA USA [Suspect]
     Indication: DERMATITIS
     Dosage: 50MG TWICE A DAY PO
     Route: 048
     Dates: start: 20070420, end: 20070515

REACTIONS (9)
  - ARTHRALGIA [None]
  - BACK PAIN [None]
  - FATIGUE [None]
  - GAIT DISTURBANCE [None]
  - PYREXIA [None]
  - RASH GENERALISED [None]
  - RASH PRURITIC [None]
  - URTICARIA [None]
  - VIRAL INFECTION [None]
